FAERS Safety Report 10237471 (Version 2)
Quarter: 2014Q2

REPORT INFORMATION
  Report Type: Report from Study
  Country: US (occurrence: US)
  Receive Date: 20140615
  Receipt Date: 20140617
  Transmission Date: 20141212
  Serious: Yes (Hospitalization)
  Sender: FDA-Public Use
  Company Number: US-009507513-1406USA005729

PATIENT
  Age: 68 Year
  Sex: Male
  Weight: 86.6 kg

DRUGS (6)
  1. BLINDED EZETIMIBE (+) SIMVASTATIN [Suspect]
     Indication: ACUTE CORONARY SYNDROME
     Dosage: UNK
     Route: 048
     Dates: end: 20140401
  2. BLINDED THERAPY [Suspect]
     Indication: ACUTE CORONARY SYNDROME
     Dosage: UNK
     Route: 048
     Dates: end: 20140401
  3. RAMIPRIL [Concomitant]
     Dosage: DAILY DOSAGE: 2.5MG
     Route: 048
  4. ASPIRIN [Concomitant]
     Dosage: DAILY DOSAGE: 81MG
     Route: 048
  5. OMEPRAZOLE [Concomitant]
     Dosage: DAILY DOSAGE: 20MG
     Route: 048
  6. ALLOPURINOL [Suspect]
     Dosage: DAILY DOSAGE: 150MG
     Route: 048

REACTIONS (1)
  - Gastrointestinal haemorrhage [Recovered/Resolved]
